FAERS Safety Report 25970607 (Version 1)
Quarter: 2025Q4

REPORT INFORMATION
  Report Type: Spontaneous
  Country: US (occurrence: US)
  Receive Date: 20251028
  Receipt Date: 20251028
  Transmission Date: 20260118
  Serious: No
  Sender: NOVO NORDISK
  Company Number: US-NOVOPROD-1497830

PATIENT

DRUGS (1)
  1. SOGROYA [Suspect]
     Active Substance: SOMAPACITAN-BECO
     Indication: Product used for unknown indication
     Dosage: 4 MG, QW

REACTIONS (3)
  - Tendon discomfort [Unknown]
  - Joint noise [Unknown]
  - Arthralgia [Unknown]
